FAERS Safety Report 6599567-7 (Version None)
Quarter: 2010Q1

REPORT INFORMATION
  Report Type: 
  Country: None (occurrence: None)
  Receive Date: 20100224
  Receipt Date: 20100211
  Transmission Date: 20100710
  Serious: Yes (Hospitalization)
  Sender: FDA-Public Use
  Company Number: US-ELI_LILLY_AND_COMPANY-US201002004317

PATIENT
  Age: 42 Year
  Sex: Female

DRUGS (1)
  1. SYMBYAX [Suspect]
     Dosage: 6/25 MG , UNKNOWN

REACTIONS (1)
  - BIPOLAR I DISORDER [None]
